FAERS Safety Report 10248588 (Version 1)
Quarter: 2014Q2

REPORT INFORMATION
  Report Type: Spontaneous
  Country: US (occurrence: None)
  Receive Date: 20140617
  Receipt Date: 20140617
  Transmission Date: 20141212
  Serious: Yes (Other)
  Sender: FDA-Public Use
  Company Number: None

PATIENT
  Age: 79 Year
  Sex: Female
  Weight: 71.2 kg

DRUGS (17)
  1. LIPOSOMAL DOXORUBICIN [Suspect]
     Indication: MALIGNANT PERITONEAL NEOPLASM
     Dosage: 240MG/M2 (LIFETIME DOSE) FOR 6 CYCLES IV
     Route: 042
     Dates: start: 20130423, end: 20130903
  2. ASPIRIN (7/12/2012 - PRESENT) [Concomitant]
  3. VITAMIN B 12 (7/12/2012 - PRESENT) [Concomitant]
  4. ASPIRIN 81 MG DELAYED RELEASE TABLET (7/12/2012 - PRESENT) [Concomitant]
  5. CYANOCOBALAMIN (VITAMIN B-12) (7/12/2012 - PRESENT) [Concomitant]
  6. FILGRASTIM (NEUPOGEN) 10/15/2013 (FOR 2 DAYS POST CHEMO) [Concomitant]
  7. GLUCOSAMINE SULFATE ORAL 7/12/2012 - PRESET [Concomitant]
  8. LIDOCAINE-DIPHENHYDRAMINE-ALUM-MAG HYDROXIDE (MAGIC MOUTHWASH) SUSPENSION 480 ML (4/9/2013 - PRESENT) [Concomitant]
  9. LIDOCAINE-PRILOCAINE (EMLA) 2.5-2.5 % CREAM 30 G 5  7/12/2012 - PRESENT [Concomitant]
  10. MULTIVITAMIN-MINERALS-LUTEIN (CENTRUM SILVER) TABLET TABLET (7/12/2012 - PRESENT)? [Concomitant]
  11. AMLODIPINE [Concomitant]
  12. ATENOLOL [Concomitant]
  13. IBUPROFEN [Concomitant]
  14. LEVOTHYROXINE [Concomitant]
  15. LISINOPRIL-HCTZ [Concomitant]
  16. METFORMIN [Concomitant]
  17. LOREZAPAM [Concomitant]

REACTIONS (3)
  - Pericardial effusion [None]
  - Pleural effusion [None]
  - Blood pressure abnormal [None]
